FAERS Safety Report 11629715 (Version 1)
Quarter: 2015Q4

REPORT INFORMATION
  Report Type: Spontaneous
  Country: US (occurrence: US)
  Receive Date: 20151014
  Receipt Date: 20151014
  Transmission Date: 20160304
  Serious: No
  Sender: FDA-Public Use
  Company Number: US-APOTEX-2015AP008220

PATIENT

DRUGS (1)
  1. BROMFENAC OPHTHALMIC SOLUTION, 0.09% [Suspect]
     Active Substance: BROMFENAC SODIUM
     Indication: PRODUCT USED FOR UNKNOWN INDICATION
     Dosage: 0.09 %, BID
     Route: 047
     Dates: start: 20150330

REACTIONS (2)
  - Incorrect dose administered by device [Unknown]
  - Product dropper issue [Unknown]
